FAERS Safety Report 6565869-3 (Version None)
Quarter: 2010Q1

REPORT INFORMATION
  Report Type: 
  Country: None (occurrence: None)
  Receive Date: 20100126
  Receipt Date: 20100115
  Transmission Date: 20100710
  Serious: Yes (Other)
  Sender: FDA-Public Use
  Company Number: 2010SP003746

PATIENT
  Age: 42 Year
  Sex: Male

DRUGS (3)
  1. SAPHRIS [Suspect]
     Indication: SCHIZOPHRENIA
     Dosage: 5 MG;BID
     Dates: start: 20100114
  2. SEROQUEL [Concomitant]
  3. KLONOPIN [Concomitant]

REACTIONS (4)
  - PAIN IN EXTREMITY [None]
  - TENSION [None]
  - TREMOR [None]
  - UNEVALUABLE EVENT [None]
